FAERS Safety Report 20602742 (Version 11)
Quarter: 2025Q1

REPORT INFORMATION
  Report Type: Spontaneous
  Country: US (occurrence: US)
  Receive Date: 20220316
  Receipt Date: 20250114
  Transmission Date: 20250408
  Serious: Yes (Other)
  Sender: PFIZER
  Company Number: US-PFIZER INC-202200397701

PATIENT
  Age: 77 Year
  Sex: Female

DRUGS (2)
  1. XELJANZ [Suspect]
     Active Substance: TOFACITINIB CITRATE
     Indication: Rheumatoid arthritis
     Dosage: 5 MG, 2X/DAY
     Route: 048
  2. XELJANZ [Suspect]
     Active Substance: TOFACITINIB CITRATE

REACTIONS (12)
  - Rheumatoid arthritis [Unknown]
  - Cerebrovascular accident [Unknown]
  - Pneumonia [Unknown]
  - Oropharyngeal discomfort [Unknown]
  - Herpes zoster [Unknown]
  - Musculoskeletal disorder [Unknown]
  - Pain [Unknown]
  - Osteoporosis [Unknown]
  - Fall [Unknown]
  - Influenza [Unknown]
  - Gait disturbance [Unknown]
  - Cough [Unknown]

NARRATIVE: CASE EVENT DATE: 20130101
